FAERS Safety Report 9271007 (Version 3)
Quarter: 2013Q3

REPORT INFORMATION
  Report Type: Spontaneous
  Country: DE (occurrence: DE)
  Receive Date: 20130506
  Receipt Date: 20130806
  Transmission Date: 20140515
  Serious: Yes (Hospitalization)
  Sender: FDA-Public Use
  Company Number: DE-JNJFOC-20130416456

PATIENT
  Age: 66 Year
  Sex: Female

DRUGS (6)
  1. XARELTO [Suspect]
     Indication: CEREBRAL ARTERY EMBOLISM
     Route: 048
     Dates: start: 20121220, end: 20130116
  2. XARELTO [Suspect]
     Indication: CEREBROVASCULAR ACCIDENT PROPHYLAXIS
     Route: 048
     Dates: start: 20121220, end: 20130116
  3. XARELTO [Suspect]
     Indication: ATRIAL FIBRILLATION
     Route: 048
     Dates: start: 20121220, end: 20130116
  4. RT-PA [Concomitant]
     Indication: THROMBOLYSIS
     Route: 065
     Dates: start: 20121214
  5. SULFAMETHOXAZOLE [Concomitant]
     Indication: URINARY TRACT INFECTION
     Route: 065
     Dates: end: 20130124
  6. TRIMETHOPRIM [Concomitant]
     Indication: URINARY TRACT INFECTION
     Route: 065
     Dates: end: 20130124

REACTIONS (1)
  - Embolism arterial [Unknown]
